FAERS Safety Report 25853368 (Version 1)
Quarter: 2025Q3

REPORT INFORMATION
  Report Type: Spontaneous
  Country: US (occurrence: None)
  Receive Date: 20250926
  Receipt Date: 20250926
  Transmission Date: 20251020
  Serious: Yes (Hospitalization)
  Sender: FDA-CTU
  Company Number: None

PATIENT
  Sex: Female

DRUGS (11)
  1. LENALIDOMIDE [Suspect]
     Active Substance: LENALIDOMIDE
     Indication: Plasma cell myeloma
     Dosage: TAKE 1 CAPSULE (25 MG) BY MOUTH DAILY FOR 21 DAYS, 7 DAYS OFF
     Route: 048
     Dates: start: 20250409
  2. CALCIUM 500 TAB +D [Concomitant]
  3. DARZALEX SOL 100/5ML [Concomitant]
  4. DEXAMETHASON POW ACETATE [Concomitant]
  5. ELIOUIS TAB 5MG [Concomitant]
  6. GABAPENTIN [Concomitant]
     Active Substance: GABAPENTIN
  7. HYDROCHLOROT CAP 12.5MG [Concomitant]
  8. LENALIDOMIDE [Concomitant]
     Active Substance: LENALIDOMIDE
  9. LISINOPRIL TAB 1 0MG [Concomitant]
  10. LOVASTATIN TAB 20MG [Concomitant]
  11. METOPROL TAR TAB 25MG [Concomitant]

REACTIONS (2)
  - Hospitalisation [None]
  - Therapy interrupted [None]
